FAERS Safety Report 11727404 (Version 1)
Quarter: 2015Q4

REPORT INFORMATION
  Report Type: Report from Study
  Country: GB (occurrence: GB)
  Receive Date: 20151112
  Receipt Date: 20151112
  Transmission Date: 20160304
  Serious: Yes (Death)
  Sender: FDA-Public Use
  Company Number: GB-MYLANLABS-2015M1039015

PATIENT

DRUGS (13)
  1. TEMAZEPAM. [Concomitant]
     Active Substance: TEMAZEPAM
     Route: 065
  2. AMITRIPTYLINE [Suspect]
     Active Substance: AMITRIPTYLINE
     Indication: PRODUCT USED FOR UNKNOWN INDICATION
     Route: 065
  3. PARACETAMOL [Concomitant]
     Active Substance: ACETAMINOPHEN
     Route: 065
  4. CODEINE [Concomitant]
     Active Substance: CODEINE
     Route: 065
  5. NOSCAPINE [Concomitant]
     Active Substance: NOSCAPINE
     Route: 065
  6. NORDAZEPAM [Concomitant]
     Active Substance: NORDAZEPAM
     Route: 065
  7. MORPHINE [Concomitant]
     Active Substance: MORPHINE
     Route: 065
  8. MIRTAZAPINE. [Concomitant]
     Active Substance: MIRTAZAPINE
     Route: 065
  9. PAPAVERINE [Concomitant]
     Active Substance: PAPAVERINE
     Route: 065
  10. DIAZEPAM. [Suspect]
     Active Substance: DIAZEPAM
     Indication: PRODUCT USED FOR UNKNOWN INDICATION
     Route: 065
  11. NORTRIPTYLINE [Concomitant]
     Active Substance: NORTRIPTYLINE
     Route: 065
  12. OXAZEPAM. [Concomitant]
     Active Substance: OXAZEPAM
     Route: 065
  13. NALOXONE [Concomitant]
     Active Substance: NALOXONE
     Route: 065

REACTIONS (1)
  - Adverse event [Fatal]
